FAERS Safety Report 7508592-0 (Version None)
Quarter: 2011Q2

REPORT INFORMATION
  Report Type: 
  Country: None (occurrence: None)
  Receive Date: 20110527
  Receipt Date: 20101006
  Transmission Date: 20111010
  Serious: No
  Sender: FDA-Public Use
  Company Number: A0886814A

PATIENT
  Age: 54 Year
  Sex: Female
  Weight: 51 kg

DRUGS (2)
  1. DIGOXIN [Concomitant]
     Dosage: 125MCG PER DAY
     Route: 048
  2. FLOLAN [Suspect]
     Route: 042
     Dates: start: 20071005

REACTIONS (4)
  - FLUSHING [None]
  - ALOPECIA [None]
  - DIARRHOEA [None]
  - PAIN IN EXTREMITY [None]
